FAERS Safety Report 7635032-3 (Version None)
Quarter: 2011Q3

REPORT INFORMATION
  Report Type: 
  Country: None (occurrence: None)
  Receive Date: 20110726
  Receipt Date: 20110706
  Transmission Date: 20111222
  Serious: No
  Sender: FDA-Public Use
  Company Number: US-B.I. PHARMACEUTICALS,INC./RIDGEFIELD-2011-BP-17139BP

PATIENT
  Sex: Male

DRUGS (9)
  1. PLAVIX [Concomitant]
     Dosage: 75 MG
     Route: 048
  2. ZETIA [Concomitant]
     Dosage: 10 MG
     Route: 048
  3. SPIRIVA [Suspect]
     Indication: EMPHYSEMA
     Dosage: 18 MCG
     Route: 055
     Dates: start: 20110601
  4. TOPROL-XL [Concomitant]
     Dosage: 50 MG
     Route: 048
  5. GLIMEPIRIDE [Concomitant]
     Indication: DIABETES MELLITUS
     Dosage: 2 MG
     Route: 048
  6. LEVROX XL [Concomitant]
     Dosage: 50 MG
     Route: 048
  7. LISINOPRIL [Concomitant]
     Dosage: 5 MG
     Route: 048
  8. METFORMIN HCL [Concomitant]
     Indication: DIABETES MELLITUS
     Dosage: 1500 MG
     Route: 048
  9. FLOMAX [Concomitant]
     Dosage: 0.4 MG
     Route: 048

REACTIONS (1)
  - BLOOD GLUCOSE INCREASED [None]
